FAERS Safety Report 15661263 (Version 2)
Quarter: 2018Q4

REPORT INFORMATION
  Report Type: Spontaneous
  Country: GB (occurrence: GB)
  Receive Date: 20181127
  Receipt Date: 20181205
  Transmission Date: 20190205
  Serious: Yes (Other)
  Sender: FDA-Public Use
  Company Number: GB-PFIZER INC-2018484631

PATIENT
  Age: 7 Year
  Sex: Female

DRUGS (1)
  1. ATROPINE SULFATE. [Suspect]
     Active Substance: ATROPINE SULFATE
     Dosage: UNK (THREE DROPS OF 1 PERCENT SOLUTION IN EACH EYE TWICE IN 6 HOURS, TOTAL 1/8 GR)
     Route: 047

REACTIONS (1)
  - Toxicity to various agents [Recovered/Resolved]
